FAERS Safety Report 4760196-9 (Version None)
Quarter: 2005Q3

REPORT INFORMATION
  Report Type: 
  Country: None (occurrence: None)
  Receive Date: 20050831
  Receipt Date: 20050816
  Transmission Date: 20060218
  Serious: Yes (Life-Threatening, Hospitalization)
  Sender: FDA-Public Use
  Company Number: USA040874589

PATIENT
  Age: 78 Year
  Sex: Female

DRUGS (16)
  1. FORTEO [Suspect]
     Indication: OSTEOPOROSIS
     Dosage: 20 UG DAY
     Dates: start: 20040501
  2. DURAGESIC-100 [Concomitant]
  3. LIPITOR [Concomitant]
  4. LORAZEPAM [Concomitant]
  5. ACIPHEX [Concomitant]
  6. TRAMADOL HCL [Concomitant]
  7. METOPROLOL [Concomitant]
  8. ECOTRIN (ACETYLSALICYLIC ACID) [Concomitant]
  9. CENTRUM [Concomitant]
  10. VITAMIN E [Concomitant]
  11. CALTRATE + D [Concomitant]
  12. ASCORBIC ACID [Concomitant]
  13. METOPROLOL [Concomitant]
  14. CALCITONIN [Concomitant]
  15. ASPIRIN [Concomitant]
  16. PROPOXYPHENE NAPSYLATE W/ ACETAMINOPHEN [Concomitant]

REACTIONS (16)
  - ARTHRALGIA [None]
  - BACK INJURY [None]
  - BACK PAIN [None]
  - CARDIO-RESPIRATORY ARREST [None]
  - CERVICAL VERTEBRAL FRACTURE [None]
  - DEVICE FAILURE [None]
  - DYSPNOEA [None]
  - HIATUS HERNIA [None]
  - INJECTION SITE HAEMORRHAGE [None]
  - INJECTION SITE PAIN [None]
  - PAIN IN EXTREMITY [None]
  - PATHOLOGICAL FRACTURE [None]
  - PHARMACEUTICAL PRODUCT COMPLAINT [None]
  - POST PROCEDURAL COMPLICATION [None]
  - SPINAL FRACTURE [None]
  - THERAPY NON-RESPONDER [None]
